FAERS Safety Report 9225555 (Version 1)
Quarter: 2013Q2

REPORT INFORMATION
  Report Type: Spontaneous
  Country: BR (occurrence: BR)
  Receive Date: 20130411
  Receipt Date: 20130411
  Transmission Date: 20140414
  Serious: Yes (Hospitalization, Other)
  Sender: FDA-Public Use
  Company Number: BR-PFIZER INC-2013111425

PATIENT
  Age: 72 Year
  Sex: Female

DRUGS (6)
  1. LIPITOR [Suspect]
     Indication: BLOOD CHOLESTEROL
     Dosage: 20 MG, DAILY
     Dates: start: 2008
  2. LYRICA [Suspect]
     Indication: PAIN
     Dosage: 75 MG, 2X/DAY
     Dates: start: 2010
  3. CALTRATE [Concomitant]
     Indication: BONE DISORDER
     Dosage: UNK
     Dates: start: 1983
  4. GLIFAGE [Concomitant]
     Indication: BLOOD GLUCOSE
     Dosage: UNK
     Dates: start: 2008
  5. OMEGA 3 [Concomitant]
     Indication: OSTEOPOROSIS
     Dosage: UNK
     Dates: start: 1983
  6. ONGLYZA [Concomitant]
     Indication: DIABETES MELLITUS
     Dosage: UNK
     Dates: start: 2008

REACTIONS (4)
  - Femur fracture [Unknown]
  - Spinal disorder [Unknown]
  - Hypoacusis [Not Recovered/Not Resolved]
  - Pain in extremity [Unknown]
